FAERS Safety Report 16213014 (Version 1)
Quarter: 2019Q2

REPORT INFORMATION
  Report Type: Spontaneous
  Country: JP (occurrence: JP)
  Receive Date: 20190418
  Receipt Date: 20190418
  Transmission Date: 20190711
  Serious: Yes (Other)
  Sender: FDA-Public Use
  Company Number: JP-BAUSCH-BL-2019-010930

PATIENT
  Age: 45 Year
  Sex: Female

DRUGS (20)
  1. DEXAMETHASONE. [Suspect]
     Active Substance: DEXAMETHASONE
     Indication: HEPATOSPLENIC T-CELL LYMPHOMA
     Dosage: ON DAYS 1 THROUGH 4 AND 11 THROUGH 14 IN HYPER-CVAD REGIMEN
     Route: 065
  2. DEXAMETHASONE. [Suspect]
     Active Substance: DEXAMETHASONE
     Dosage: ON DAYS 1 TO 4; GCD REGIMEN
     Route: 065
  3. TACROLIMUS. [Concomitant]
     Active Substance: TACROLIMUS
     Indication: PROPHYLAXIS AGAINST GRAFT VERSUS HOST DISEASE
  4. MYCOPHENOLATE MOFETIL. [Concomitant]
     Active Substance: MYCOPHENOLATE MOFETIL
     Indication: PROPHYLAXIS AGAINST GRAFT VERSUS HOST DISEASE
     Dosage: DISCONTINUED ON DAY 30 WITHOUT TAPERING
  5. PREDNISONE. [Suspect]
     Active Substance: PREDNISONE
     Indication: HEPATOSPLENIC T-CELL LYMPHOMA
     Dosage: ON DAYS 1 THROUGH 5
     Route: 048
  6. CARBOPLATIN. [Suspect]
     Active Substance: CARBOPLATIN
     Indication: HEPATOSPLENIC T-CELL LYMPHOMA
     Dosage: AREA UNDER THE CURVE (AUC) WAS 5 ON DAY 1
     Route: 065
  7. CYCLOPHOSPHAMIDE. [Suspect]
     Active Substance: CYCLOPHOSPHAMIDE
     Dosage: CHOP REGIMEN
     Route: 065
  8. GEMCITABINE [Suspect]
     Active Substance: GEMCITABINE\GEMCITABINE HYDROCHLORIDE
     Indication: HEPATOSPLENIC T-CELL LYMPHOMA
     Dosage: ON DAYS 1 AND 8 IN GCD REGIMEN
     Route: 065
  9. URSODEOXYCHOLIC ACID [Concomitant]
     Active Substance: URSODIOL
     Indication: PROPHYLAXIS
  10. MESNA. [Suspect]
     Active Substance: MESNA
     Indication: HEPATOSPLENIC T-CELL LYMPHOMA
     Dosage: SIX DOSES OVER 3H EVERY 12H ON DAYS 1 THROUGH 3; TWO CYCLES
     Route: 065
  11. DOXORUBICIN [Suspect]
     Active Substance: DOXORUBICIN
     Dosage: IN CHOP REGIMEN
     Route: 065
  12. CISPLATIN. [Suspect]
     Active Substance: CISPLATIN
     Indication: HEPATOSPLENIC T-CELL LYMPHOMA
     Dosage: 4 CYCLES
     Route: 065
  13. CYTARABINE. [Suspect]
     Active Substance: CYTARABINE
     Indication: HEPATOSPLENIC T-CELL LYMPHOMA
     Dosage: 4 CYCLES: ON DAY 5
     Route: 042
  14. CYCLOPHOSPHAMIDE. [Suspect]
     Active Substance: CYCLOPHOSPHAMIDE
     Dosage: MYELOABLATIVE CONDITIONING REGIMEN
     Route: 065
  15. VINCRISTINE [Suspect]
     Active Substance: VINCRISTINE
     Indication: HEPATOSPLENIC T-CELL LYMPHOMA
     Dosage: ON DAYS 4 AND 11; TWO CYCLES IN HYPER-CVAD REGIMEN
     Route: 065
  16. ETOPOSIDE. [Suspect]
     Active Substance: ETOPOSIDE
     Indication: HEPATOSPLENIC T-CELL LYMPHOMA
     Dosage: 4 CYCLES
     Route: 065
  17. VINCRISTINE [Suspect]
     Active Substance: VINCRISTINE
     Dosage: CHOP REGIMEN; ADMINISTERED INTRAVENOUSLY ON DAY 1
     Route: 042
  18. DOXORUBICIN [Suspect]
     Active Substance: DOXORUBICIN
     Indication: HEPATOSPLENIC T-CELL LYMPHOMA
     Dosage: ON DAY 4; TWO CYCLES OF HYPER-CVAD REGIMEN
     Route: 065
  19. METHYLPREDNISOLONE. [Suspect]
     Active Substance: METHYLPREDNISOLONE
     Indication: HEPATOSPLENIC T-CELL LYMPHOMA
     Dosage: 4 CYCLES
     Route: 065
  20. CYCLOPHOSPHAMIDE. [Suspect]
     Active Substance: CYCLOPHOSPHAMIDE
     Indication: HEPATOSPLENIC T-CELL LYMPHOMA
     Dosage: SIX DOSES OVER 3 HOURS, EVERY 12 HOURS ON DAYS 1 THROUGH 3; TWO CYCLES IN HYPER-CVAD REGIMEN
     Route: 065

REACTIONS (3)
  - Hypophagia [Recovered/Resolved]
  - Renal failure [Recovering/Resolving]
  - Gastritis [Recovered/Resolved]
